FAERS Safety Report 10562760 (Version 1)
Quarter: 2014Q4

REPORT INFORMATION
  Report Type: Spontaneous
  Country: US (occurrence: US)
  Receive Date: 20141104
  Receipt Date: 20141104
  Transmission Date: 20150529
  Serious: No
  Sender: FDA-Public Use
  Company Number: US-PFIZER INC-2014299681

PATIENT
  Age: 44 Year
  Sex: Female
  Weight: 70.3 kg

DRUGS (1)
  1. CAVERJECT [Suspect]
     Active Substance: ALPROSTADIL
     Dosage: UNK
     Route: 050

REACTIONS (9)
  - Discomfort [Unknown]
  - Skin discolouration [Unknown]
  - Vulvovaginal pruritus [Unknown]
  - Exposure via partner [Unknown]
  - Genital swelling [Unknown]
  - Dysuria [Unknown]
  - Gait disturbance [Unknown]
  - Pain [Unknown]
  - Vulvovaginal discomfort [Unknown]
